FAERS Safety Report 4980628-0 (Version None)
Quarter: 2006Q2

REPORT INFORMATION
  Report Type: 
  Country: None (occurrence: None)
  Receive Date: 20060424
  Receipt Date: 20011130
  Transmission Date: 20061013
  Serious: Yes (Hospitalization, Disabling)
  Sender: FDA-Public Use
  Company Number: US-ROCHE-302932

PATIENT
  Age: 14 Year
  Sex: Male

DRUGS (36)
  1. ACCUTANE [Suspect]
     Route: 048
     Dates: start: 19910321, end: 19910515
  2. ACCUTANE [Suspect]
     Route: 048
  3. ACCUTANE [Suspect]
     Route: 048
     Dates: start: 19920424
  4. ACCUTANE [Suspect]
     Route: 048
     Dates: start: 19921029, end: 19930401
  5. ACCUTANE [Suspect]
     Route: 048
     Dates: start: 19940715, end: 19940801
  6. ACCUTANE [Suspect]
     Route: 048
     Dates: start: 19940801, end: 19940815
  7. ACCUTANE [Suspect]
     Route: 048
     Dates: start: 19940815, end: 19941015
  8. ACCUTANE [Suspect]
     Route: 048
  9. ACCUTANE [Suspect]
     Route: 048
     Dates: start: 19950328, end: 19950815
  10. ACCUTANE [Suspect]
     Route: 048
     Dates: start: 19951011, end: 19951116
  11. ACCUTANE [Suspect]
     Route: 048
     Dates: start: 19951116, end: 19960315
  12. ACCUTANE [Suspect]
     Route: 048
     Dates: start: 19960513
  13. ACCUTANE [Suspect]
     Route: 048
     Dates: start: 19980429, end: 19980827
  14. ACCUTANE [Suspect]
     Route: 048
     Dates: start: 19980827, end: 19990615
  15. ACCUTANE [Suspect]
     Route: 048
     Dates: start: 19991209, end: 20000615
  16. ACCUTANE [Suspect]
     Route: 048
     Dates: start: 20000615, end: 20000615
  17. BACTRIM [Concomitant]
     Indication: INFECTION
     Dates: start: 19960216
  18. ZITHROMAX [Concomitant]
     Indication: SINOBRONCHITIS
     Dates: start: 19971220
  19. ROBITUSSIN AC [Concomitant]
     Indication: SINUS CONGESTION
     Dates: start: 19971220
  20. TETRACYCLINE [Concomitant]
     Indication: ACNE
     Dosage: STOPPED WHILST ON AZITHROMYCIN.
  21. MYCOLOG [Concomitant]
     Dates: start: 19980429
  22. MINOCYCLINE HCL [Concomitant]
     Dates: start: 19980429
  23. TAGAMET [Concomitant]
     Dates: start: 19980827
  24. 1 CONCOMITANT DRUG [Concomitant]
  25. DHEA [Concomitant]
  26. HUMIBID [Concomitant]
     Indication: SINOBRONCHITIS
     Dates: start: 19981103
  27. HUMIBID DM [Concomitant]
     Indication: BRONCHITIS
     Dates: start: 19981222
  28. ACCOLATE [Concomitant]
     Indication: BRONCHITIS
     Dates: start: 19981222
  29. BIAXIN [Concomitant]
     Indication: BRONCHITIS
     Dates: start: 19990317
  30. ENTEX LA [Concomitant]
     Indication: BRONCHITIS
     Dates: start: 19990317
  31. IMODIUM A-D [Concomitant]
     Indication: DIARRHOEA
     Dates: start: 20000815, end: 20000816
  32. ALEVE [Concomitant]
     Indication: PAIN
     Dates: start: 19991209
  33. DOXICYCLIN [Concomitant]
     Dates: start: 19991229
  34. NAPRELAN [Concomitant]
     Dates: start: 20000208
  35. ANAPROX [Concomitant]
     Dates: start: 20000523
  36. FLEXERIL [Concomitant]
     Dates: start: 20000523

REACTIONS (90)
  - ABDOMINAL DISCOMFORT [None]
  - ABDOMINAL PAIN [None]
  - ABDOMINAL PAIN LOWER [None]
  - ABDOMINAL PAIN UPPER [None]
  - ABSCESS INTESTINAL [None]
  - ACNE [None]
  - ANAL FISSURE [None]
  - ANGER [None]
  - ANORECTAL DISORDER [None]
  - ANXIETY [None]
  - ARTHRALGIA [None]
  - ARTHRITIS [None]
  - ARTHRITIS INFECTIVE [None]
  - BACK PAIN [None]
  - BLOOD TRIGLYCERIDES INCREASED [None]
  - BOWEL SOUNDS ABNORMAL [None]
  - BRONCHITIS [None]
  - BURNING SENSATION [None]
  - CELLULITIS [None]
  - CHEST PAIN [None]
  - CHILLS [None]
  - COLITIS ULCERATIVE [None]
  - CONDITION AGGRAVATED [None]
  - CONSTIPATION [None]
  - COSTOCHONDRITIS [None]
  - COUGH [None]
  - CROHN'S DISEASE [None]
  - CYST [None]
  - DECREASED APPETITE [None]
  - DEPRESSION [None]
  - DIARRHOEA [None]
  - DISEASE RECURRENCE [None]
  - DIZZINESS [None]
  - DRUG INEFFECTIVE [None]
  - FATIGUE [None]
  - FEELING JITTERY [None]
  - FISTULA [None]
  - FOLLICULITIS [None]
  - GASTRIC DISORDER [None]
  - GASTROENTERITIS BACTERIAL [None]
  - HAEMATOCHEZIA [None]
  - HAEMORRHOIDS [None]
  - HEADACHE [None]
  - HYDROCELE [None]
  - INFECTED VARICOSE VEIN [None]
  - INFECTION [None]
  - INFLAMMATION [None]
  - INFLAMMATORY BOWEL DISEASE [None]
  - INGROWN HAIR [None]
  - INGUINAL HERNIA [None]
  - INSOMNIA [None]
  - JOINT INJURY [None]
  - LACRIMATION INCREASED [None]
  - LOCALISED INFECTION [None]
  - LOW DENSITY LIPOPROTEIN INCREASED [None]
  - MOOD SWINGS [None]
  - MUCOUS MEMBRANE DISORDER [None]
  - MUCOUS STOOLS [None]
  - MUSCLE TWITCHING [None]
  - MUSCULOSKELETAL CHEST PAIN [None]
  - MYALGIA [None]
  - NAUSEA [None]
  - NECK PAIN [None]
  - NIGHT SWEATS [None]
  - OSTEOARTHRITIS [None]
  - PAIN IN EXTREMITY [None]
  - PENIS DISORDER [None]
  - PILONIDAL CYST [None]
  - PLEURITIC PAIN [None]
  - PROCTALGIA [None]
  - PROCTITIS [None]
  - PRODUCTIVE COUGH [None]
  - PRURITUS ANI [None]
  - PSEUDOPOLYP [None]
  - PYREXIA [None]
  - RECTAL HAEMORRHAGE [None]
  - RED BLOOD CELLS SEMEN POSITIVE [None]
  - SCROTAL DISORDER [None]
  - SEBORRHOEIC DERMATITIS [None]
  - SINUS CONGESTION [None]
  - SINUSITIS [None]
  - SKIN PAPILLOMA [None]
  - SUICIDAL IDEATION [None]
  - TENDONITIS [None]
  - THERMAL BURN [None]
  - TINEA PEDIS [None]
  - VARICOSE VEIN [None]
  - VASCULITIS [None]
  - WEIGHT DECREASED [None]
  - WOUND INFECTION [None]
